FAERS Safety Report 6743397-X (Version None)
Quarter: 2010Q2

REPORT INFORMATION
  Report Type: 
  Country: None (occurrence: None)
  Receive Date: 20100527
  Receipt Date: 20100513
  Transmission Date: 20101027
  Serious: Yes (Other)
  Sender: FDA-Public Use
  Company Number: ES-ELI_LILLY_AND_COMPANY-ES201005003874

PATIENT
  Sex: Female
  Weight: 68 kg

DRUGS (6)
  1. FORTEO [Suspect]
     Indication: OSTEOPOROSIS
     Dosage: 20 UG, DAILY (1/D)
     Route: 058
     Dates: start: 20100111
  2. OMEPRAZOLE [Concomitant]
     Indication: GASTRIC DISORDER
     Dosage: UNK, DAILY (1/D)
     Route: 048
  3. IBUPROFEN [Concomitant]
     Indication: PAIN
     Dosage: 600 MG, 2/D
     Route: 048
  4. IBERCAL [Concomitant]
     Indication: OSTEOPOROSIS
     Dosage: UNK, 2/D
     Route: 048
  5. LYRICA [Concomitant]
     Indication: PAIN
     Dosage: 75 MG, DAILY (1/D)
     Route: 048
  6. AZOPT [Concomitant]
     Indication: GLAUCOMA
     Dosage: UNK, DAILY (1/D)
     Route: 047

REACTIONS (2)
  - FALL [None]
  - HUMERUS FRACTURE [None]
